FAERS Safety Report 8118846-5 (Version None)
Quarter: 2012Q1

REPORT INFORMATION
  Report Type: 
  Country: None (occurrence: None)
  Receive Date: 20120207
  Receipt Date: 20120203
  Transmission Date: 20120608
  Serious: Yes (Life-Threatening, Other)
  Sender: FDA-Public Use
  Company Number: FR-ELI_LILLY_AND_COMPANY-FR201202000997

PATIENT
  Age: 62 Year
  Sex: Male

DRUGS (2)
  1. CARBOPLATIN [Concomitant]
     Indication: NON-SMALL CELL LUNG CANCER
     Dosage: 431 MG, UNK
     Route: 042
     Dates: start: 20101215
  2. ALIMTA [Suspect]
     Indication: NON-SMALL CELL LUNG CANCER
     Dosage: 890 MG, UNK
     Route: 042
     Dates: start: 20101215, end: 20101215

REACTIONS (6)
  - ILEUS PARALYTIC [None]
  - MUCOSAL INFLAMMATION [None]
  - PURPURA [None]
  - CYTOLYTIC HEPATITIS [None]
  - RENAL FAILURE [None]
  - PANCYTOPENIA [None]
